FAERS Safety Report 9204193 (Version 2)
Quarter: 2013Q2

REPORT INFORMATION
  Report Type: Spontaneous
  Country: US (occurrence: US)
  Receive Date: 20130402
  Receipt Date: 20130408
  Transmission Date: 20140414
  Serious: Yes (Other)
  Sender: FDA-Public Use
  Company Number: US-ALEXION-A201300616

PATIENT
  Sex: Male
  Weight: 87.9 kg

DRUGS (5)
  1. SOLIRIS 300MG [Suspect]
     Indication: PAROXYSMAL NOCTURNAL HAEMOGLOBINURIA
     Dosage: 600 MG, QW
     Route: 042
     Dates: start: 2010, end: 2010
  2. SOLIRIS 300MG [Suspect]
     Dosage: 900 MG, Q2W
     Route: 042
     Dates: start: 2010
  3. COUMADIN [Concomitant]
     Dosage: 2.5-5 MG, QD
     Route: 048
  4. FOLIC ACID [Concomitant]
     Dosage: 400 ?G, QD
     Route: 048
  5. METOPROLOL [Concomitant]
     Dosage: 5 MG, QD
     Route: 048

REACTIONS (1)
  - Presyncope [Recovered/Resolved]
